FAERS Safety Report 4339467-6 (Version None)
Quarter: 2004Q2

REPORT INFORMATION
  Report Type: 
  Country: None (occurrence: None)
  Receive Date: 20040412
  Receipt Date: 20040406
  Transmission Date: 20050107
  Serious: Yes (Hospitalization)
  Sender: FDA-Public Use
  Company Number: 2004207805DE

PATIENT
  Age: 80 Year
  Sex: Male

DRUGS (5)
  1. ESTRACYT (ESTRAMUSTINE PHOSPHATE) CAPSULE [Suspect]
     Indication: PROSTATE CANCER METASTATIC
     Dosage: 840 MG, ORAL
     Route: 048
     Dates: start: 20030114, end: 20030121
  2. VINORELBINE (VINORELBINE) [Suspect]
     Indication: PROSTATE CANCER METASTATIC
     Dosage: 35 MG, IV
     Route: 042
     Dates: start: 20030114, end: 20030121
  3. ZOLEDRONATE () [Suspect]
     Indication: METASTASES TO BONE
     Dosage: 4 MG, IV
     Route: 042
     Dates: start: 20010730
  4. BICALUTAMIDE [Concomitant]
  5. TAXOTERE [Concomitant]

REACTIONS (6)
  - ESCHERICHIA SEPSIS [None]
  - ESCHERICHIA URINARY TRACT INFECTION [None]
  - MUCOSAL INFLAMMATION [None]
  - NEUTROPENIA [None]
  - PYREXIA [None]
  - RENAL FAILURE [None]
